FAERS Safety Report 5104833-8 (Version None)
Quarter: 2006Q3

REPORT INFORMATION
  Report Type: 
  Country: None (occurrence: None)
  Receive Date: 20060911
  Receipt Date: 20060911
  Transmission Date: 20061208
  Serious: No
  Sender: FDA-Public Use
  Company Number: None

PATIENT
  Age: 20 Year
  Sex: Female
  Weight: 47.6277 kg

DRUGS (1)
  1. DEPO-PROVERA [Suspect]
     Indication: CONTRACEPTION
     Dosage: ONE SHOT    EVERY 3 MONTHS
     Dates: start: 20040110, end: 20050110

REACTIONS (3)
  - AMENORRHOEA [None]
  - INFERTILITY [None]
  - MYOCARDIAL INFARCTION [None]
